FAERS Safety Report 4919479-1 (Version None)
Quarter: 2006Q1

REPORT INFORMATION
  Report Type: 
  Country: None (occurrence: None)
  Receive Date: 20060222
  Receipt Date: 20050324
  Transmission Date: 20060701
  Serious: Yes (Hospitalization)
  Sender: FDA-Public Use
  Company Number: US-MERCK-0503USA04628

PATIENT
  Age: 49 Year
  Sex: Female
  Weight: 88 kg

DRUGS (9)
  1. VIOXX [Suspect]
     Indication: OEDEMA PERIPHERAL
     Route: 048
     Dates: start: 20030901, end: 20040901
  2. VIOXX [Suspect]
     Indication: PAIN
     Route: 048
     Dates: start: 20030901, end: 20040901
  3. HUMULIN [Concomitant]
     Indication: DIABETES MELLITUS INSULIN-DEPENDENT
     Route: 058
  4. HUMULIN [Concomitant]
     Route: 058
  5. HUMALOG [Concomitant]
     Indication: DIABETES MELLITUS
     Route: 058
  6. HUMALOG [Concomitant]
     Route: 058
  7. ULTRACET [Concomitant]
     Indication: PAIN
     Route: 065
  8. DARVOCET-N 50 [Concomitant]
     Indication: PAIN
     Route: 065
  9. NEURONTIN [Concomitant]
     Indication: PAIN
     Route: 065

REACTIONS (4)
  - CORONARY ARTERY DISEASE [None]
  - PLEURAL EFFUSION [None]
  - SUDDEN CARDIAC DEATH [None]
  - SYNCOPE [None]
